FAERS Safety Report 22171601 (Version 1)
Quarter: 2023Q2

REPORT INFORMATION
  Report Type: Other
  Country: None (occurrence: GR)
  Receive Date: 20230404
  Receipt Date: 20230404
  Transmission Date: 20230721
  Serious: Yes (Hospitalization)
  Sender: FDA-Public Use
  Company Number: GR-B.Braun Medical Inc.-2139867

PATIENT
  Age: 61 Year
  Sex: Male

DRUGS (7)
  1. LIDOCAINE HYDROCHLORIDE [Suspect]
     Active Substance: LIDOCAINE HYDROCHLORIDE
     Indication: Anaesthesia
  2. FENTANYL [Suspect]
     Active Substance: FENTANYL
  3. MIDAZOLAM [Suspect]
     Active Substance: MIDAZOLAM
  4. PROPOFOL [Suspect]
     Active Substance: PROPOFOL
  5. ROCURONIUM [Suspect]
     Active Substance: ROCURONIUM BROMIDE
  6. DESFLURANE [Suspect]
     Active Substance: DESFLURANE
  7. DEXMEDETOMIDINE [Suspect]
     Active Substance: DEXMEDETOMIDINE

REACTIONS (3)
  - Trigemino-cardiac reflex [Unknown]
  - Acute coronary syndrome [Unknown]
  - Atrioventricular block complete [Unknown]
